FAERS Safety Report 18413397 (Version 1)
Quarter: 2020Q4

REPORT INFORMATION
  Report Type: Spontaneous
  Country: US (occurrence: US)
  Receive Date: 20201022
  Receipt Date: 20201022
  Transmission Date: 20210114
  Serious: No
  Sender: FDA-Public Use
  Company Number: US-009507513-2009USA009770

PATIENT
  Age: 16 Year
  Weight: 56 kg

DRUGS (2)
  1. NOXAFIL [Suspect]
     Active Substance: POSACONAZOLE
     Dosage: 300 MILLIGRAM, Q12H
     Route: 042
  2. FOSPHENYTOIN SODIUM. [Interacting]
     Active Substance: FOSPHENYTOIN SODIUM
     Dosage: UNKNOWN

REACTIONS (2)
  - Drug interaction [Unknown]
  - Off label use [Unknown]
